FAERS Safety Report 7649624-9 (Version None)
Quarter: 2011Q3

REPORT INFORMATION
  Report Type: 
  Country: None (occurrence: None)
  Receive Date: 20110802
  Receipt Date: 20110801
  Transmission Date: 20111222
  Serious: No
  Sender: FDA-Public Use
  Company Number: US-PFIZER INC-2011174907

PATIENT
  Sex: Female
  Weight: 70.295 kg

DRUGS (6)
  1. TYLENOL-500 [Suspect]
     Dosage: UNK
  2. CELEBREX [Suspect]
     Indication: ANTIINFLAMMATORY THERAPY
     Dosage: 200 MG, DAILY
     Route: 048
     Dates: end: 20100101
  3. RELAFEN [Suspect]
     Indication: LIMB DISCOMFORT
     Dosage: UNK
     Route: 048
  4. TYLENOL-500 [Suspect]
     Indication: PAIN
     Dosage: UNK
     Route: 048
  5. MOTRIN [Concomitant]
     Dosage: UNK
  6. TYLENOL-500 [Concomitant]
     Dosage: UNK

REACTIONS (1)
  - DRUG HYPERSENSITIVITY [None]
